FAERS Safety Report 4292059-X (Version None)
Quarter: 2004Q1

REPORT INFORMATION
  Report Type: 
  Country: None (occurrence: None)
  Receive Date: 20040211
  Receipt Date: 20030703
  Transmission Date: 20041129
  Serious: Yes (Life-Threatening)
  Sender: FDA-Public Use
  Company Number: WAES 0307USA00425

PATIENT
  Sex: Female

DRUGS (2)
  1. HYDRODIURIL [Concomitant]
     Route: 048
  2. COZAAR [Suspect]
     Indication: HYPERTENSION
     Route: 048
     Dates: start: 20030628, end: 20030629

REACTIONS (5)
  - DISCOMFORT [None]
  - DYSGEUSIA [None]
  - DYSPNOEA [None]
  - FEELING ABNORMAL [None]
  - INSOMNIA [None]
